FAERS Safety Report 5567747-5 (Version None)
Quarter: 2007Q4

REPORT INFORMATION
  Report Type: 
  Country: None (occurrence: None)
  Receive Date: 20071218
  Receipt Date: 20071202
  Transmission Date: 20080405
  Serious: Yes (Other)
  Sender: FDA-Public Use
  Company Number: 2007S1012729

PATIENT
  Age: 78 Year
  Sex: Male

DRUGS (2)
  1. AZATHIOPRINE [Suspect]
     Indication: COLITIS ULCERATIVE
  2. ASACOL [Concomitant]

REACTIONS (2)
  - METASTASES TO LYMPH NODES [None]
  - NEUROENDOCRINE CARCINOMA OF THE SKIN [None]
